FAERS Safety Report 4837165-3 (Version None)
Quarter: 2005Q4

REPORT INFORMATION
  Report Type: 
  Country: None (occurrence: None)
  Receive Date: 20051122
  Receipt Date: 20050915
  Transmission Date: 20060501
  Serious: Yes (Other)
  Sender: FDA-Public Use
  Company Number: 2005088659

PATIENT
  Age: 91 Year
  Sex: Female
  Weight: 70.7611 kg

DRUGS (27)
  1. DETROL LA [Suspect]
     Indication: MICTURITION URGENCY
     Dosage: 4 MG ( 4 MG, 1 IN 1 D), ORAL
     Route: 048
     Dates: start: 20030201
  2. DRUG, UNSPECIFIED (DRUG, UNSPECIFIED) [Concomitant]
  3. HYDROMORPHONE HCL [Concomitant]
  4. FOSAMAX [Concomitant]
  5. FERROUS GLUCONATE (FERROUS GLUCONATE) [Concomitant]
  6. VITAMIN C (VITAMIN C) [Concomitant]
  7. ACETAMINOPHEN AND HYDROCODONE BITARTRATE [Concomitant]
  8. NEURONTIN [Concomitant]
  9. PREVACID [Concomitant]
  10. FUROSEMIDE [Concomitant]
  11. DOXEPIN (DOXEPIN) [Concomitant]
  12. ESTROPIPATE [Concomitant]
  13. LISINOPRIL [Concomitant]
  14. ASPIRIN [Concomitant]
  15. ASACOL [Concomitant]
  16. ZOLOFT [Concomitant]
  17. QUININE SULFATE [Concomitant]
  18. TEMAZEPAM [Concomitant]
  19. ZYRTEC-D 12 HOUR [Concomitant]
  20. LIPITOR [Concomitant]
  21. TYLENOL ARTHRITIS     (PARACETAMOL) [Concomitant]
  22. SENNA-GEN (SENNA) [Concomitant]
  23. GLUCOSAMINE W/CHONDROITIN SULFATES [Concomitant]
  24. OSCAL 500-D                  (CALCIUM, COLECALCIFEROL) [Concomitant]
  25. VITAMIN E [Concomitant]
  26. CENTRUM SILVER [Concomitant]
  27. BACTROBAN CREAM             (MUPIROCIN) [Concomitant]

REACTIONS (32)
  - ANAEMIA [None]
  - ANAEMIA OF CHRONIC DISEASE [None]
  - AORTIC VALVE DISEASE [None]
  - ARTHRALGIA [None]
  - BACK DISORDER [None]
  - BACK PAIN [None]
  - BREATH SOUNDS ABNORMAL [None]
  - CARDIAC MURMUR [None]
  - CARDIAC PACEMAKER INSERTION [None]
  - CELLULITIS [None]
  - CONDITION AGGRAVATED [None]
  - COUGH [None]
  - DECREASED ACTIVITY [None]
  - DEPRESSED MOOD [None]
  - DEPRESSION [None]
  - DIABETES MELLITUS NON-INSULIN-DEPENDENT [None]
  - DIZZINESS [None]
  - DRY MOUTH [None]
  - ESSENTIAL HYPERTENSION [None]
  - FATIGUE [None]
  - GASTRIC DISORDER [None]
  - HAND FRACTURE [None]
  - HYPERLIPIDAEMIA [None]
  - HYPERTONIC BLADDER [None]
  - MALAISE [None]
  - MULTIPLE ALLERGIES [None]
  - OSTEOARTHRITIS [None]
  - PAIN [None]
  - SKIN ULCER [None]
  - SPINAL OSTEOARTHRITIS [None]
  - TENSION HEADACHE [None]
  - VISION BLURRED [None]
